FAERS Safety Report 4546839-3 (Version None)
Quarter: 2005Q1

REPORT INFORMATION
  Report Type: 
  Country: None (occurrence: None)
  Receive Date: 20050105
  Receipt Date: 20041216
  Transmission Date: 20050727
  Serious: Yes (Other)
  Sender: FDA-Public Use
  Company Number: CA_041207530

PATIENT
  Age: 12 Year
  Sex: Male
  Weight: 84 kg

DRUGS (1)
  1. ATOMOXETINE HYDROCHLORIDE [Suspect]
     Indication: ATTENTION DEFICIT/HYPERACTIVITY DISORDER
     Dosage: 80 MG DAY
     Dates: start: 20040316, end: 20041203

REACTIONS (7)
  - BLOOD CALCIUM INCREASED [None]
  - BLOOD CHOLESTEROL INCREASED [None]
  - BLOOD URIC ACID INCREASED [None]
  - GASTROENTERITIS NORWALK VIRUS [None]
  - HEADACHE [None]
  - HEPATITIS [None]
  - INFLUENZA LIKE ILLNESS [None]
